FAERS Safety Report 8824246 (Version 1)
Quarter: 2012Q4

REPORT INFORMATION
  Report Type: 
  Country: GB (occurrence: GB)
  Receive Date: 20121004
  Receipt Date: 20121004
  Transmission Date: 20130627
  Serious: Yes (Other)
  Sender: FDA-Public Use
  Company Number: GB-MERCK-1209GBR011862

PATIENT

DRUGS (1)
  1. ZOCOR [Suspect]
     Indication: HYPERLIPIDAEMIA
     Route: 048

REACTIONS (3)
  - Drug intolerance [Unknown]
  - Myopathy [Unknown]
  - Myalgia [Unknown]
